FAERS Safety Report 4473719-4 (Version None)
Quarter: 2004Q4

REPORT INFORMATION
  Report Type: 
  Country: None (occurrence: None)
  Receive Date: 20040909
  Receipt Date: 20040409
  Transmission Date: 20050328
  Serious: Yes (Hospitalization)
  Sender: FDA-Public Use
  Company Number: APP200400383

PATIENT
  Age: 28 Year
  Sex: Female
  Weight: 68.9467 kg

DRUGS (7)
  1. OXYTOCIN [Suspect]
     Indication: POSTPARTUM HAEMORRHAGE
     Dosage: 20 UNITS IN LACTATED RINGERS AT 150 CC/HR, INTRAVENOUS
     Route: 042
     Dates: start: 20040328, end: 20040328
  2. OXYTOCIN [Suspect]
     Indication: POSTPARTUM HAEMORRHAGE
     Dosage: 20 UNITS IN LACTATED RINGERS AT 150 CC/HR, INTRAVENOUS
     Route: 042
     Dates: start: 20040329, end: 20040329
  3. LOMOTIL [Concomitant]
  4. COLACE (DOCUSATE SODIUM) [Concomitant]
  5. TYLENOL [Concomitant]
  6. MYLICON (DIMETICONE, ACETATE) [Concomitant]
  7. DARVOCET-N (PROPACET) [Concomitant]

REACTIONS (1)
  - DRUG INEFFECTIVE [None]
